FAERS Safety Report 6915782-4 (Version None)
Quarter: 2010Q3

REPORT INFORMATION
  Report Type: 
  Country: None (occurrence: None)
  Receive Date: 20100810
  Receipt Date: 20100423
  Transmission Date: 20110219
  Serious: No
  Sender: FDA-Public Use
  Company Number: A0839964A

PATIENT
  Sex: Male
  Weight: 90.9 kg

DRUGS (4)
  1. PAROXETINE HCL [Suspect]
     Indication: PRODUCT USED FOR UNKNOWN INDICATION
     Dosage: 20MG UNKNOWN
     Route: 065
     Dates: start: 20070101
  2. GEODON [Concomitant]
     Route: 065
  3. DEPAKOTE [Concomitant]
  4. MULTIPLE MEDICATIONS [Concomitant]

REACTIONS (6)
  - DYSGEUSIA [None]
  - HEADACHE [None]
  - HYPOGEUSIA [None]
  - TOOTH DISCOLOURATION [None]
  - TOOTHACHE [None]
  - WEIGHT INCREASED [None]
